FAERS Safety Report 7292357-1 (Version None)
Quarter: 2011Q1

REPORT INFORMATION
  Report Type: 
  Country: None (occurrence: None)
  Receive Date: 20110215
  Receipt Date: 20101228
  Transmission Date: 20110831
  Serious: Yes (Other)
  Sender: FDA-Public Use
  Company Number: US-BAYER-201020797NA

PATIENT
  Sex: Female

DRUGS (7)
  1. YAZ [Suspect]
     Indication: PRODUCT USED FOR UNKNOWN INDICATION
     Route: 048
     Dates: start: 20040901, end: 20041001
  2. METHYLDOPA [Concomitant]
  3. PHOSLO [Concomitant]
  4. YASMIN [Suspect]
     Route: 048
     Dates: start: 20040901, end: 20041001
  5. DARVOCET-N 100 [Concomitant]
  6. DIATX [Concomitant]
  7. METOCLOPRAMIDE HCL [Concomitant]

REACTIONS (10)
  - DYSPNOEA [None]
  - MALAISE [None]
  - CHEST DISCOMFORT [None]
  - DECREASED APPETITE [None]
  - ANAEMIA OF CHRONIC DISEASE [None]
  - GLOMERULONEPHRITIS ACUTE [None]
  - HYPERTENSION [None]
  - HYPERKALAEMIA [None]
  - RENAL FAILURE CHRONIC [None]
  - HYPERTENSIVE NEPHROPATHY [None]
